FAERS Safety Report 7425447-0 (Version None)
Quarter: 2011Q2

REPORT INFORMATION
  Report Type: 
  Country: None (occurrence: None)
  Receive Date: 20110414
  Receipt Date: 20110330
  Transmission Date: 20111010
  Serious: Yes (Hospitalization, Other)
  Sender: FDA-Public Use
  Company Number: 024025

PATIENT
  Sex: Male
  Weight: 98 kg

DRUGS (18)
  1. TULIP /00435301/ [Concomitant]
  2. VEROSPIRON [Concomitant]
  3. EGILOK [Concomitant]
  4. ATENOLOL [Concomitant]
  5. GANATON [Concomitant]
  6. SULPIRIDE [Concomitant]
  7. RIVOTRIL [Concomitant]
  8. LISKANTIN [Concomitant]
  9. BETALOC /00376902/ [Concomitant]
  10. PANGROL /00014701/ [Concomitant]
  11. CILAZAPRIL [Concomitant]
  12. HYDROCHLOROTHIAZIDE [Concomitant]
  13. GODASAL /01574801/ [Concomitant]
  14. NEUPRO [Suspect]
     Indication: PARKINSON'S DISEASE
     Dosage: (2 MG QD TRANSDERMAL), (4 MG QD TRANSDERMAL), (8 MG QD TRANSDERMAL)
     Route: 062
     Dates: start: 20101105, end: 20110106
  15. NEUPRO [Suspect]
     Indication: PARKINSON'S DISEASE
     Dosage: (2 MG QD TRANSDERMAL), (4 MG QD TRANSDERMAL), (8 MG QD TRANSDERMAL)
     Route: 062
     Dates: start: 20101028, end: 20101104
  16. NEUPRO [Suspect]
     Indication: PARKINSON'S DISEASE
     Dosage: (2 MG QD TRANSDERMAL), (4 MG QD TRANSDERMAL), (8 MG QD TRANSDERMAL)
     Route: 062
     Dates: start: 20101021, end: 20101027
  17. PANTOPRAZOLE [Concomitant]
  18. DETRALEX [Concomitant]

REACTIONS (3)
  - CHOLANGITIS [None]
  - PANCREATITIS NECROTISING [None]
  - CHOLELITHIASIS [None]
